FAERS Safety Report 6106012-4 (Version None)
Quarter: 2009Q1

REPORT INFORMATION
  Report Type: 
  Country: None (occurrence: None)
  Receive Date: 20090306
  Receipt Date: 20090306
  Transmission Date: 20090719
  Serious: Yes (Disabling)
  Sender: FDA-Public Use
  Company Number: None

PATIENT
  Age: 72 Year
  Sex: Female
  Weight: 70.7611 kg

DRUGS (8)
  1. CRESTOR [Suspect]
     Dosage: 1 DAILY SAME BY MOUTH
     Route: 048
     Dates: start: 20070101
  2. CRESTOR [Suspect]
     Dosage: 1 DAILY SAME BY MOUTH
     Route: 048
     Dates: start: 20060101
  3. CRESTOR [Suspect]
     Dosage: 1 DAILY SAME BY MOUTH
     Route: 048
     Dates: start: 20061101
  4. CRESTOR [Suspect]
     Dosage: 1 DAILY SAME BY MOUTH
     Route: 048
     Dates: start: 20061201
  5. CRESTOR [Suspect]
     Dosage: 1 DAILY SAME BY MOUTH
     Route: 048
     Dates: start: 20070101
  6. CRESTOR [Suspect]
     Dosage: 1 DAILY SAME BY MOUTH
     Route: 048
     Dates: start: 20070201
  7. CRESTOR [Suspect]
     Dosage: 1 DAILY SAME BY MOUTH
     Route: 048
     Dates: start: 20070301
  8. CRESTOR [Suspect]
     Dosage: 1 DAILY SAME BY MOUTH
     Route: 048
     Dates: start: 20070401

REACTIONS (7)
  - ASTHENIA [None]
  - FATIGUE [None]
  - INSOMNIA [None]
  - MOVEMENT DISORDER [None]
  - PAIN [None]
  - QUALITY OF LIFE DECREASED [None]
  - RHEUMATOID ARTHRITIS [None]
